FAERS Safety Report 9813567 (Version 1)
Quarter: 2014Q1

REPORT INFORMATION
  Report Type: Spontaneous
  Country: FR (occurrence: FR)
  Receive Date: 20140113
  Receipt Date: 20140113
  Transmission Date: 20141002
  Serious: Yes (Hospitalization)
  Sender: FDA-Public Use
  Company Number: FR-PFIZER INC-2014005536

PATIENT
  Age: 53 Year
  Sex: Male

DRUGS (21)
  1. DALACINE [Suspect]
     Dosage: 600 MG, 3X/DAY
     Route: 048
     Dates: start: 20131130, end: 20131221
  2. DALACINE [Suspect]
     Dosage: 600 MG, 3X/DAY
     Route: 048
     Dates: start: 20131223
  3. LEDERFOLINE [Suspect]
     Indication: CEREBRAL TOXOPLASMOSIS
     Dosage: 25 MG, 4X/WEEK
     Route: 048
     Dates: start: 20131125, end: 20131221
  4. LEDERFOLINE [Suspect]
     Dosage: 25 MG, 4X/WEEK
     Route: 048
     Dates: start: 20131223
  5. LAROXYL [Suspect]
     Dosage: 50 MG, 1X/DAY
     Route: 048
     Dates: start: 20131214, end: 20131217
  6. LAROXYL [Suspect]
     Dosage: UNK
     Route: 048
     Dates: start: 20131218, end: 20131221
  7. LAROXYL [Suspect]
     Dosage: UNK
     Dates: start: 20131223, end: 20131227
  8. MALOCIDE [Suspect]
     Indication: CEREBRAL TOXOPLASMOSIS
     Dosage: 75 MG, 1X/DAY
     Route: 048
     Dates: start: 20131125, end: 20131221
  9. MALOCIDE [Suspect]
     Dosage: 75 MG, 1X/DAY
     Route: 048
     Dates: start: 20131223
  10. CELSENTRI [Suspect]
     Dosage: 150 MG, 2X/DAY
     Route: 048
     Dates: start: 20131214, end: 20131221
  11. CELSENTRI [Suspect]
     Dosage: 150 MG, 2X/DAY
     Route: 048
     Dates: start: 20131223
  12. INTELENCE [Suspect]
     Dosage: 200 MG, 2X/DAY
     Route: 048
     Dates: start: 20131214, end: 20131221
  13. INTELENCE [Suspect]
     Dosage: 200 MG, 2X/DAY
     Route: 048
     Dates: start: 20131223
  14. KALETRA [Suspect]
     Dosage: 100 MG, 2X/DAY
     Route: 048
     Dates: start: 20131214, end: 20131221
  15. KALETRA [Suspect]
     Dosage: 100 MG, 2X/DAY
     Route: 048
     Dates: start: 20131223
  16. ISENTRESS [Suspect]
     Dosage: 400 MG, 2X/DAY
     Route: 048
     Dates: start: 20131214, end: 20131221
  17. ISENTRESS [Suspect]
     Dosage: 400 MG, 2X/DAY
     Route: 048
     Dates: start: 20131223
  18. WELLVONE [Suspect]
     Dosage: 750 MG, 2X/DAY
     Route: 048
     Dates: start: 20131130, end: 20131221
  19. WELLVONE [Suspect]
     Dosage: 750 MG, 2X/DAY
     Route: 048
     Dates: start: 20131223
  20. KEPPRA [Concomitant]
     Dosage: UNK
     Dates: start: 20131129
  21. KEPPRA [Concomitant]
     Dosage: 750 MG, 2X/DAY

REACTIONS (1)
  - Status epilepticus [Recovering/Resolving]
